FAERS Safety Report 4971727-8 (Version None)
Quarter: 2006Q2

REPORT INFORMATION
  Report Type: 
  Country: None (occurrence: None)
  Receive Date: 20060407
  Receipt Date: 20060327
  Transmission Date: 20061013
  Serious: Yes (Other)
  Sender: FDA-Public Use
  Company Number: HQWYE840305OCT05

PATIENT
  Age: 49 Year
  Sex: Female
  Weight: 95.34 kg

DRUGS (5)
  1. EFFEXOR XR [Suspect]
     Indication: DEPRESSION
     Dosage: SEE IMAGE
     Route: 048
     Dates: start: 20030101, end: 20050909
  2. EFFEXOR XR [Suspect]
     Indication: DEPRESSION
     Dosage: SEE IMAGE
     Route: 048
     Dates: start: 20050910, end: 20050913
  3. EFFEXOR XR [Suspect]
     Indication: DEPRESSION
     Dosage: SEE IMAGE
     Route: 048
     Dates: start: 20050914, end: 20050918
  4. MULTIVITAMINS, PLAIN (MULTIVITAMINS, PLAIN) [Concomitant]
  5. VIACTIV (CALCIUM CARBONATE) [Concomitant]

REACTIONS (5)
  - ARTHRALGIA [None]
  - CONDITION AGGRAVATED [None]
  - DRUG WITHDRAWAL SYNDROME [None]
  - FEELING ABNORMAL [None]
  - HAEMANGIOMA [None]
